FAERS Safety Report 15221794 (Version 1)
Quarter: 2018Q3

REPORT INFORMATION
  Report Type: Spontaneous
  Country: AT (occurrence: AT)
  Receive Date: 20180731
  Receipt Date: 20180731
  Transmission Date: 20181010
  Serious: Yes (Hospitalization, Other)
  Sender: FDA-Public Use
  Company Number: AT-009507513-1806AUT012839

PATIENT
  Sex: Female

DRUGS (1)
  1. PEMBROLIZUMAB. [Suspect]
     Active Substance: PEMBROLIZUMAB
     Dosage: RECEIVED 16 TIMES
     Dates: start: 2017

REACTIONS (5)
  - Abdominal pain upper [Not Recovered/Not Resolved]
  - Gait inability [Not Recovered/Not Resolved]
  - Metastases to bone marrow [Unknown]
  - Burning sensation [Not Recovered/Not Resolved]
  - Spinal disorder [Not Recovered/Not Resolved]

NARRATIVE: CASE EVENT DATE: 201806
